FAERS Safety Report 17931962 (Version 1)
Quarter: 2020Q2

REPORT INFORMATION
  Report Type: Report from Study
  Country: None (occurrence: AU)
  Receive Date: 20200624
  Receipt Date: 20200624
  Transmission Date: 20200714
  Serious: Yes (Other)
  Sender: FDA-Public Use
  Company Number: AU-ABBVIE-20K-008-3449457-00

PATIENT
  Age: 50 Year
  Sex: Male

DRUGS (1)
  1. HUMIRA [Suspect]
     Active Substance: ADALIMUMAB
     Indication: PSORIATIC ARTHROPATHY
     Route: 058
     Dates: start: 20200501

REACTIONS (8)
  - Choking [Unknown]
  - Loss of consciousness [Unknown]
  - Pain in extremity [Not Recovered/Not Resolved]
  - Blood pressure decreased [Unknown]
  - Weight increased [Not Recovered/Not Resolved]
  - Cough [Unknown]
  - Fluid retention [Unknown]
  - Back pain [Not Recovered/Not Resolved]

NARRATIVE: CASE EVENT DATE: 2020
